FAERS Safety Report 21021421 (Version 1)
Quarter: 2022Q2

REPORT INFORMATION
  Report Type: Spontaneous
  Country: US (occurrence: US)
  Receive Date: 20220629
  Receipt Date: 20220629
  Transmission Date: 20220721
  Serious: Yes (Hospitalization, Other)
  Sender: FDA-Public Use
  Company Number: US-ABBVIE-22K-163-4446003-00

PATIENT
  Sex: Female
  Weight: 87.168 kg

DRUGS (9)
  1. RINVOQ [Suspect]
     Active Substance: UPADACITINIB
     Indication: Skin reaction
     Route: 048
     Dates: start: 2021
  2. RINVOQ [Suspect]
     Active Substance: UPADACITINIB
     Indication: Psoriatic arthropathy
  3. RINVOQ [Suspect]
     Active Substance: UPADACITINIB
     Indication: Rheumatoid arthritis
  4. PFIZER-BIONTECH COVID-19 VACCINE [Concomitant]
     Active Substance: TOZINAMERAN
     Indication: COVID-19 immunisation
     Route: 030
     Dates: start: 202104, end: 202104
  5. PFIZER-BIONTECH COVID-19 VACCINE [Concomitant]
     Active Substance: TOZINAMERAN
     Route: 030
     Dates: start: 202201, end: 202201
  6. JANSSEN COVID-19 VACCINE [Concomitant]
     Active Substance: AD26.COV2.S
     Indication: COVID-19 immunisation
     Route: 030
  7. COVID-19 VACCINE [Concomitant]
     Indication: COVID-19 immunisation
     Dosage: FIRST DOSE
     Route: 030
     Dates: start: 202004, end: 202004
  8. COVID-19 VACCINE [Concomitant]
     Dosage: SECOND DOSE
     Route: 030
     Dates: start: 20210425, end: 20210425
  9. COVID-19 VACCINE [Concomitant]
     Dosage: THIRD DOSE
     Route: 030
     Dates: start: 20220425, end: 20220425

REACTIONS (10)
  - Blood iron increased [Not Recovered/Not Resolved]
  - Feeling abnormal [Recovered/Resolved]
  - Lung disorder [Recovering/Resolving]
  - COVID-19 [Recovered/Resolved]
  - Chronic obstructive pulmonary disease [Not Recovered/Not Resolved]
  - Platelet count increased [Not Recovered/Not Resolved]
  - Lung opacity [Recovered/Resolved]
  - Kidney infection [Recovered/Resolved]
  - Diarrhoea [Recovered/Resolved]
  - Anaemia [Recovered/Resolved]

NARRATIVE: CASE EVENT DATE: 20210101
